FAERS Safety Report 12940815 (Version 2)
Quarter: 2017Q4

REPORT INFORMATION
  Report Type: Report from Study
  Country: GB (occurrence: GB)
  Receive Date: 20161115
  Receipt Date: 20171024
  Transmission Date: 20180320
  Serious: Yes (Hospitalization)
  Sender: FDA-Public Use
  Company Number: GB-ROCHE-1852863

PATIENT
  Sex: Female

DRUGS (4)
  1. CODEINE [Concomitant]
     Active Substance: CODEINE
     Route: 048
     Dates: start: 20150903
  2. MYCOPHENOLATE MOFETIL. [Suspect]
     Active Substance: MYCOPHENOLATE MOFETIL
     Indication: LUPUS NEPHRITIS
     Route: 065
  3. RITUXIMAB. [Suspect]
     Active Substance: RITUXIMAB
     Indication: LUPUS NEPHRITIS
     Route: 065
  4. PARACETAMOL [Concomitant]
     Active Substance: ACETAMINOPHEN
     Route: 048
     Dates: start: 20140101

REACTIONS (1)
  - Emotional distress [Recovered/Resolved]

NARRATIVE: CASE EVENT DATE: 20161005
